FAERS Safety Report 25346812 (Version 1)
Quarter: 2025Q2

REPORT INFORMATION
  Report Type: Spontaneous
  Country: HK (occurrence: HK)
  Receive Date: 20250522
  Receipt Date: 20250522
  Transmission Date: 20250717
  Serious: Yes (Death, Hospitalization, Other)
  Sender: Steriscience PTE
  Company Number: HK-STERISCIENCE B.V.-2025-ST-000909

PATIENT
  Age: 10 Decade
  Sex: Female
  Weight: 40 kg

DRUGS (2)
  1. ACETYLCYSTEINE [Suspect]
     Active Substance: ACETYLCYSTEINE
     Indication: Drug-induced liver injury
     Route: 065
  2. ACETAMINOPHEN [Concomitant]
     Active Substance: ACETAMINOPHEN
     Indication: Pain
     Route: 048

REACTIONS (2)
  - Hepatic failure [Fatal]
  - Drug ineffective [Fatal]
